FAERS Safety Report 7166734-3 (Version None)
Quarter: 2010Q4

REPORT INFORMATION
  Report Type: 
  Country: None (occurrence: None)
  Receive Date: 20101203
  Receipt Date: 20101118
  Transmission Date: 20110411
  Serious: Yes (Other)
  Sender: FDA-Public Use
  Company Number: ACO_20519_2010

PATIENT
  Age: 57 Year
  Sex: Female
  Weight: 94.8 kg

DRUGS (15)
  1. AMPYRA [Suspect]
     Indication: GAIT DISTURBANCE
     Dosage: 10 MG, Q 12 HRS, ORAL
     Route: 048
     Dates: start: 20100901
  2. WARFARIN (WARFARIN) [Concomitant]
  3. CALCIUM (CALCIUM) [Concomitant]
  4. DIAZEPAM [Concomitant]
  5. IBUPROFEN [Concomitant]
  6. AVONEX [Concomitant]
  7. BACLOFEN [Concomitant]
  8. METFORMIN HCL [Concomitant]
  9. STARLIX [Concomitant]
  10. JANUVIA [Concomitant]
  11. DILTIAZEM [Concomitant]
  12. METOPROLOL SUCCINATE [Concomitant]
  13. SYNTHROID [Concomitant]
  14. ZOCOR [Concomitant]
  15. DITROPAN XL [Concomitant]

REACTIONS (3)
  - ATRIAL FIBRILLATION [None]
  - BLOOD MAGNESIUM DECREASED [None]
  - URTICARIA [None]
